FAERS Safety Report 7919229-0 (Version None)
Quarter: 2011Q4

REPORT INFORMATION
  Report Type: 
  Country: None (occurrence: None)
  Receive Date: 20111117
  Receipt Date: 20101115
  Transmission Date: 20120403
  Serious: Yes (Hospitalization, Other)
  Sender: FDA-Public Use
  Company Number: US-SHIRE-SPV1-2010-01990

PATIENT
  Sex: Female
  Weight: 58.957 kg

DRUGS (4)
  1. VYVANSE [Suspect]
     Indication: ATTENTION DEFICIT/HYPERACTIVITY DISORDER
     Dosage: 1-2 30MG TABS EVERY AM AS NEEDED
     Dates: start: 20070101, end: 20101103
  2. DEXTROAMPHETAMINE [Concomitant]
     Indication: ATTENTION DEFICIT/HYPERACTIVITY DISORDER
     Dosage: 1/2 TO 1 20MG TABLET
     Route: 048
     Dates: start: 20100101, end: 20101103
  3. DEXTROAMPHETAMINE [Concomitant]
     Dosage: 1/4 TO 1/2 10MG TAB
     Route: 048
     Dates: start: 20100101, end: 20101103
  4. ADDERALL 5 [Suspect]
     Indication: ATTENTION DEFICIT/HYPERACTIVITY DISORDER
     Dosage: 1/4 TO 3/4 20MG TABLET DAILY
     Route: 048

REACTIONS (14)
  - RHABDOMYOLYSIS [None]
  - ARRHYTHMIA [None]
  - MYALGIA [None]
  - FATIGUE [None]
  - BLOOD PRESSURE INCREASED [None]
  - OEDEMA PERIPHERAL [None]
  - HYPERKALAEMIA [None]
  - WRONG TECHNIQUE IN DRUG USAGE PROCESS [None]
  - PAIN IN EXTREMITY [None]
  - PALPITATIONS [None]
  - INSOMNIA [None]
  - BLOOD CREATINE PHOSPHOKINASE INCREASED [None]
  - SYNCOPE [None]
  - DRUG PRESCRIBING ERROR [None]
